FAERS Safety Report 18474891 (Version 2)
Quarter: 2020Q4

REPORT INFORMATION
  Report Type: Spontaneous
  Country: JP (occurrence: JP)
  Receive Date: 20201106
  Receipt Date: 20201117
  Transmission Date: 20210114
  Serious: Yes (Hospitalization)
  Sender: FDA-Public Use
  Company Number: JP-DSJP-DSJ-2020-131901AA

PATIENT
  Age: 88 Year

DRUGS (2)
  1. LIXIANA OD TABLETS 60MG [Suspect]
     Active Substance: EDOXABAN TOSYLATE
     Dosage: 15MG/DAY (TAKEN 0.25 TABLETS OF 60MG OD TABLETS)
     Route: 065
  2. LIXIANA OD TABLETS 60MG [Suspect]
     Active Substance: EDOXABAN TOSYLATE
     Indication: EMBOLISM VENOUS
     Dosage: 15MG/DAY (TAKEN 0.25 TABLETS OF 60MG OD TABLETS)
     Route: 065

REACTIONS (3)
  - Urinary tract infection [Unknown]
  - Condition aggravated [Unknown]
  - Prescribed underdose [Unknown]
